FAERS Safety Report 7205403-8 (Version None)
Quarter: 2010Q4

REPORT INFORMATION
  Report Type: 
  Country: None (occurrence: None)
  Receive Date: 20101231
  Receipt Date: 20101213
  Transmission Date: 20110411
  Serious: No
  Sender: FDA-Public Use
  Company Number: US-B.I. PHARMACEUTICALS,INC./RIDGEFIELD-2010-BP-14506BP

PATIENT
  Sex: Female

DRUGS (10)
  1. SPIRIVA [Suspect]
     Dosage: 18 MCG
     Route: 055
     Dates: start: 20080101
  2. SPIRIVA [Suspect]
     Route: 055
  3. LITHIUM [Concomitant]
     Indication: BIPOLAR DISORDER
  4. GENERIC FOR SYNTHROID [Concomitant]
     Indication: HYPOTHYROIDISM
  5. PLAVIX [Concomitant]
     Indication: CEREBROVASCULAR ACCIDENT
  6. LOTENSIN [Concomitant]
     Indication: HYPERTENSION
  7. SIMVASTATIN [Concomitant]
     Indication: BLOOD CHOLESTEROL INCREASED
  8. PULMICORT [Concomitant]
  9. SEREVENT [Concomitant]
  10. XOPENEX [Concomitant]

REACTIONS (1)
  - URINE OUTPUT DECREASED [None]
